FAERS Safety Report 6310278-5 (Version None)
Quarter: 2009Q3

REPORT INFORMATION
  Report Type: 
  Country: None (occurrence: None)
  Receive Date: 20090814
  Receipt Date: 20090804
  Transmission Date: 20100115
  Serious: Yes (Other)
  Sender: FDA-Public Use
  Company Number: PHHY2009CA32869

PATIENT

DRUGS (1)
  1. DIOVAN T30230++HY [Suspect]

REACTIONS (1)
  - DIABETES MELLITUS [None]
